FAERS Safety Report 4550537-X (Version None)
Quarter: 2004Q4

REPORT INFORMATION
  Report Type: 
  Country: None (occurrence: None)
  Receive Date: 20041227
  Receipt Date: 20041123
  Transmission Date: 20050328
  Serious: No
  Sender: FDA-Public Use
  Company Number: 04P-163-0281290-00

PATIENT
  Age: 41 Year
  Sex: Female
  Weight: 100 kg

DRUGS (7)
  1. HUMIRA [Suspect]
     Indication: RHEUMATOID ARTHRITIS
     Dosage: 40 MG 1 IN 1 D SUBCUTANEOUS
     Route: 058
     Dates: start: 20040801, end: 20041001
  2. HYDROXYCHLOROQUINE PHOSPHATE [Concomitant]
  3. TRAZODONE [Concomitant]
  4. ATENOLOL [Concomitant]
  5. LEVOTHYROXINE SODIUM [Concomitant]
  6. CYCLOBENZAPRINE HYDROCHLORIDE [Concomitant]
  7. FLUOXETINE [Concomitant]

REACTIONS (3)
  - DRUG INEFFECTIVE [None]
  - HYPOAESTHESIA [None]
  - PARAESTHESIA [None]
